FAERS Safety Report 4777487-8 (Version None)
Quarter: 2005Q3

REPORT INFORMATION
  Report Type: 
  Country: None (occurrence: None)
  Receive Date: 20050915
  Receipt Date: 20050908
  Transmission Date: 20060218
  Serious: Yes (Other)
  Sender: FDA-Public Use
  Company Number: 2005-03351

PATIENT
  Sex: Female

DRUGS (2)
  1. FIORINAL [Suspect]
     Indication: TENSION HEADACHE
     Dosage: 1 CAPSUL, PRN, ORAL
     Route: 048
     Dates: end: 20050301
  2. ASPIRIN [Suspect]
     Dosage: PRN, ORAL
     Route: 048

REACTIONS (3)
  - BREAST CANCER FEMALE [None]
  - CONTUSION [None]
  - VEIN DISORDER [None]
